FAERS Safety Report 5577646-0 (Version None)
Quarter: 2007Q4

REPORT INFORMATION
  Report Type: 
  Country: None (occurrence: None)
  Receive Date: 20071231
  Receipt Date: 20071225
  Transmission Date: 20080405
  Serious: Yes (Death)
  Sender: FDA-Public Use
  Company Number: PHBS2007JP21381

PATIENT
  Age: 75 Year
  Sex: Male

DRUGS (2)
  1. DIOVAN [Suspect]
     Indication: HYPERTENSION
     Dosage: 160 MG/DAY
     Route: 048
     Dates: start: 20070711, end: 20071219
  2. ACTOS [Concomitant]
     Dosage: 15 MG/DAY
     Route: 048
     Dates: start: 20060426, end: 20071219

REACTIONS (1)
  - SUDDEN DEATH [None]
